FAERS Safety Report 17950041 (Version 4)
Quarter: 2021Q1

REPORT INFORMATION
  Report Type: Other
  Country: JP (occurrence: JP)
  Receive Date: 20200626
  Receipt Date: 20210322
  Transmission Date: 20210419
  Serious: Yes (Hospitalization, Other)
  Sender: FDA-Public Use
  Company Number: JP-ROCHE-2620793

PATIENT
  Age: 54 Year
  Sex: Male
  Weight: 50 kg

DRUGS (6)
  1. TECENTRIQ [Suspect]
     Active Substance: ATEZOLIZUMAB
     Indication: SMALL CELL LUNG CANCER
  2. ETOPOSIDE. [Suspect]
     Active Substance: ETOPOSIDE
     Indication: SMALL CELL LUNG CANCER
     Dosage: DOSAGE IS UNCERTAIN.
     Route: 065
     Dates: start: 20200325, end: 20200527
  3. ETOPOSIDE. [Suspect]
     Active Substance: ETOPOSIDE
     Indication: SMALL CELL LUNG CANCER EXTENSIVE STAGE
     Dosage: DOSE IS UNCERTAIN
     Route: 065
  4. CARBOPLATIN. [Suspect]
     Active Substance: CARBOPLATIN
     Indication: SMALL CELL LUNG CANCER
     Dosage: DOSAGE IS UNCERTAIN.
     Route: 041
     Dates: start: 20200325, end: 20200526
  5. TECENTRIQ [Suspect]
     Active Substance: ATEZOLIZUMAB
     Indication: SMALL CELL LUNG CANCER EXTENSIVE STAGE
     Dosage: DOSAGE IS UNCERTAIN.
     Route: 041
     Dates: start: 20200325, end: 20200526
  6. CARBOPLATIN. [Suspect]
     Active Substance: CARBOPLATIN
     Dosage: DOSAGE IS UNCERTAIN.
     Route: 041

REACTIONS (6)
  - Diarrhoea [Recovered/Resolved]
  - Colitis ulcerative [Recovering/Resolving]
  - Febrile neutropenia [Unknown]
  - Autoimmune colitis [Recovered/Resolved]
  - Pleural effusion [Unknown]
  - Myelosuppression [Unknown]

NARRATIVE: CASE EVENT DATE: 20200528
